FAERS Safety Report 9090341 (Version 1)
Quarter: 2013Q1

REPORT INFORMATION
  Report Type: Spontaneous
  Country: US (occurrence: US)
  Receive Date: 20130201
  Receipt Date: 20130201
  Transmission Date: 20140127
  Serious: No
  Sender: FDA-Public Use
  Company Number: US-ABBOTT-12P-163-1018527-00

PATIENT
  Sex: Female

DRUGS (4)
  1. HUMIRA [Suspect]
     Indication: CROHN^S DISEASE
     Dates: start: 201203, end: 201211
  2. CIMZIA [Suspect]
     Indication: CROHN^S DISEASE
     Dates: start: 201211
  3. METHOTREXATE [Suspect]
     Indication: CROHN^S DISEASE
     Dates: end: 201209
  4. AZATHIOPRINE [Concomitant]
     Indication: PRODUCT USED FOR UNKNOWN INDICATION

REACTIONS (4)
  - Psoriasis [Recovered/Resolved]
  - Psoriasis [Unknown]
  - Pruritus [Unknown]
  - Wound secretion [Unknown]
